FAERS Safety Report 23242468 (Version 2)
Quarter: 2023Q4

REPORT INFORMATION
  Report Type: Spontaneous
  Country: DZ (occurrence: DZ)
  Receive Date: 20231129
  Receipt Date: 20231213
  Transmission Date: 20240110
  Serious: Yes (Other)
  Sender: FDA-Public Use
  Company Number: DZ-AMGEN-DZASP2023207574

PATIENT
  Age: 20 Year
  Sex: Male

DRUGS (2)
  1. BLINCYTO [Suspect]
     Active Substance: BLINATUMOMAB
     Indication: Philadelphia chromosome negative
     Dosage: 9 MICROGRAM, QD
     Route: 065
     Dates: start: 20231115
  2. BLINCYTO [Suspect]
     Active Substance: BLINATUMOMAB
     Indication: Acute lymphocytic leukaemia

REACTIONS (3)
  - Platelet count abnormal [Unknown]
  - Cytokine release syndrome [Unknown]
  - Epistaxis [Unknown]

NARRATIVE: CASE EVENT DATE: 20231101
